FAERS Safety Report 17203233 (Version 2)
Quarter: 2020Q1

REPORT INFORMATION
  Report Type: Spontaneous
  Country: US (occurrence: US)
  Receive Date: 20191226
  Receipt Date: 20200117
  Transmission Date: 20200409
  Serious: No
  Sender: FDA-Public Use
  Company Number: US-BRISTOL-MYERS SQUIBB COMPANY-BMS-2019-123556

PATIENT
  Sex: Male

DRUGS (1)
  1. SPRYCEL [Suspect]
     Active Substance: DASATINIB
     Indication: GASTRIC CANCER
     Dosage: 70 MILLIGRAM, DAILY
     Route: 048
     Dates: start: 20191021

REACTIONS (5)
  - Fatigue [Unknown]
  - Headache [Unknown]
  - Skin burning sensation [Unknown]
  - Asthenia [Unknown]
  - Intentional product use issue [Unknown]
